FAERS Safety Report 8096380-9 (Version None)
Quarter: 2012Q1

REPORT INFORMATION
  Report Type: 
  Country: None (occurrence: None)
  Receive Date: 20120129
  Receipt Date: 20111107
  Transmission Date: 20120608
  Serious: No
  Sender: FDA-Public Use
  Company Number: US-ABBOTT-11P-163-0872596-00

PATIENT
  Sex: Male
  Weight: 87.622 kg

DRUGS (10)
  1. TRAMADOL HCL [Concomitant]
     Indication: RHEUMATOID ARTHRITIS
  2. DICLOFENAC [Concomitant]
     Indication: RHEUMATOID ARTHRITIS
  3. FOLIC ACID [Concomitant]
     Indication: VITAMIN SUPPLEMENTATION
  4. CRESTOR [Concomitant]
     Indication: BLOOD CHOLESTEROL INCREASED
  5. HUMIRA [Suspect]
     Indication: RHEUMATOID ARTHRITIS
     Dates: start: 20110701, end: 20110701
  6. PREDNISONE TAB [Concomitant]
     Indication: RHEUMATOID ARTHRITIS
  7. PANTOPRAZOLE [Concomitant]
     Indication: ULCER
  8. TRILIPIX [Concomitant]
     Indication: BLOOD TRIGLYCERIDES INCREASED
  9. METHOTREXATE [Concomitant]
     Indication: RHEUMATOID ARTHRITIS
  10. LEVOTHYROXINE SODIUM [Concomitant]
     Indication: HYPOTHYROIDISM

REACTIONS (2)
  - DRUG INEFFECTIVE [None]
  - PAIN [None]
